FAERS Safety Report 5379562-6 (Version None)
Quarter: 2007Q3

REPORT INFORMATION
  Report Type: 
  Country: None (occurrence: None)
  Receive Date: 20070703
  Receipt Date: 20070622
  Transmission Date: 20080115
  Serious: Yes (Other)
  Sender: FDA-Public Use
  Company Number: S07-USA-02715-01

PATIENT
  Age: 62 Year
  Sex: Female

DRUGS (6)
  1. CELEXA [Suspect]
     Indication: ANXIETY
     Dosage: 10 MG QD PO
     Route: 048
     Dates: start: 20070625
  2. CELEXA [Suspect]
     Indication: ANXIETY
     Dosage: 30 MG QD PO
     Route: 048
     Dates: start: 20061101, end: 20070101
  3. CELEXA [Suspect]
     Indication: ANXIETY
     Dosage: 25 MG QD PO
     Route: 048
     Dates: start: 20050701, end: 20061101
  4. CELEXA [Suspect]
     Indication: ANXIETY
     Dosage: 20 MG QD PO
     Route: 048
     Dates: start: 20070101, end: 20070624
  5. CELEBREX [Suspect]
     Indication: ARTHRALGIA
     Dates: start: 20070501, end: 20070501
  6. CELEBREX [Suspect]
     Indication: MUSCULOSKELETAL STIFFNESS
     Dates: start: 20070501, end: 20070501

REACTIONS (5)
  - ANXIETY [None]
  - ARTHRALGIA [None]
  - BREAST CANCER FEMALE [None]
  - DIARRHOEA [None]
  - JOINT STIFFNESS [None]
